FAERS Safety Report 8937983 (Version 1)
Quarter: 2012Q4

REPORT INFORMATION
  Report Type: Spontaneous
  Country: US (occurrence: None)
  Receive Date: 20121123
  Receipt Date: 20121123
  Transmission Date: 20130627
  Serious: Yes (Hospitalization)
  Sender: FDA-Public Use
  Company Number: 2012P1064922

PATIENT
  Age: 9 Year
  Sex: Female

DRUGS (4)
  1. FENTANYL (NO PREF. NAME) [Suspect]
     Indication: PAIN AGGRAVATED
  2. MORPHINE [Suspect]
     Indication: PAIN IN HIP
     Dosage: 2 MG;Q2H;IV
     Route: 042
  3. HYDROMORPHONE [Suspect]
  4. HYDROMORPHONE [Suspect]
     Dosage: 0.2 MG; Q2H

REACTIONS (6)
  - Irritability [None]
  - Agitation [None]
  - Emotional distress [None]
  - Tachycardia [None]
  - Hyperaesthesia [None]
  - Pain [None]
